FAERS Safety Report 8547298-6 (Version None)
Quarter: 2012Q3

REPORT INFORMATION
  Report Type: 
  Country: None (occurrence: None)
  Receive Date: 20120727
  Receipt Date: 20120314
  Transmission Date: 20120928
  Serious: No
  Sender: FDA-Public Use
  Company Number: US-ASTRAZENECA-2012SE17979

PATIENT
  Age: 69 Year
  Sex: Female

DRUGS (5)
  1. SEROQUEL [Suspect]
     Indication: DEPRESSION
     Route: 048
  2. LEXAPRO [Concomitant]
     Indication: DEPRESSION
  3. LEXAPRO [Concomitant]
     Indication: INSOMNIA
  4. LEXAPRO [Concomitant]
     Indication: ANXIETY
  5. SEROQUEL [Suspect]
     Indication: ANXIETY
     Route: 048

REACTIONS (1)
  - ADVERSE EVENT [None]
